FAERS Safety Report 5671665-1 (Version None)
Quarter: 2008Q1

REPORT INFORMATION
  Report Type: 
  Country: None (occurrence: None)
  Receive Date: 20080313
  Receipt Date: 20080229
  Transmission Date: 20080703
  Serious: Yes (Hospitalization)
  Sender: FDA-Public Use
  Company Number: GB-DEXPHARM-20080161

PATIENT
  Age: 92 Year
  Sex: Male

DRUGS (8)
  1. OMEPRAZOLE [Suspect]
     Indication: HYPONATRAEMIA
     Dosage: 20 MG MILLIGRAM(S) ORAL
     Route: 048
     Dates: start: 20060101, end: 20080218
  2. FLUOXETINE [Suspect]
     Indication: DEPRESSION
     Dosage: 20 MG MILLIGRAM(S) ORAL
     Route: 048
     Dates: start: 20040101, end: 20080218
  3. BISACODYL [Concomitant]
  4. CODEINE PHOSPHATE AND ACETAMINOPHEN [Concomitant]
  5. MOVICOL [Concomitant]
  6. PROCHLORPERAZINE [Concomitant]
  7. RAMIPRIL [Concomitant]
  8. ZOPICLONE [Concomitant]

REACTIONS (1)
  - HYPONATRAEMIA [None]
